FAERS Safety Report 7353415-6 (Version None)
Quarter: 2011Q1

REPORT INFORMATION
  Report Type: 
  Country: None (occurrence: None)
  Receive Date: 20110315
  Receipt Date: 20110303
  Transmission Date: 20110831
  Serious: Yes (Hospitalization)
  Sender: FDA-Public Use
  Company Number: US-JNJFOC-20110303274

PATIENT
  Sex: Male
  Weight: 56.84 kg

DRUGS (6)
  1. FLUTICASONE PROPIONATE [Concomitant]
  2. IRON [Concomitant]
  3. REMICADE [Suspect]
     Indication: INFLAMMATORY BOWEL DISEASE
     Route: 042
  4. MESALAMINE [Concomitant]
     Route: 048
  5. A MULTIVITAMIN [Concomitant]
  6. OMEPRAZOLE [Concomitant]

REACTIONS (3)
  - DEHYDRATION [None]
  - PNEUMOTHORAX [None]
  - GASTROENTERITIS ROTAVIRUS [None]
